FAERS Safety Report 6291973-3 (Version None)
Quarter: 2009Q3

REPORT INFORMATION
  Report Type: 
  Country: None (occurrence: None)
  Receive Date: 20090729
  Receipt Date: 20090716
  Transmission Date: 20100115
  Serious: No
  Sender: FDA-Public Use
  Company Number: 2009008774

PATIENT
  Age: 72 Year
  Sex: Female

DRUGS (3)
  1. FENTORA [Suspect]
     Dosage: 200 MCG, BU
     Route: 002
  2. OXYCONTIN [Concomitant]
  3. OXYCODONE HCL [Concomitant]

REACTIONS (3)
  - ACCIDENTAL EXPOSURE [None]
  - DYSARTHRIA [None]
  - PAIN [None]
